FAERS Safety Report 25462489 (Version 1)
Quarter: 2025Q2

REPORT INFORMATION
  Report Type: Spontaneous
  Country: US (occurrence: US)
  Receive Date: 20250620
  Receipt Date: 20250620
  Transmission Date: 20250716
  Serious: Yes (Other)
  Sender: NOVO NORDISK
  Company Number: US-NOVOPROD-1449427

PATIENT
  Sex: Female

DRUGS (2)
  1. TRESIBA [Suspect]
     Active Substance: INSULIN DEGLUDEC
     Indication: Type 2 diabetes mellitus
     Dosage: 44 IU, BID (MORNING AND NIGHT)
  2. RYBELSUS [Concomitant]
     Active Substance: SEMAGLUTIDE
     Indication: Type 2 diabetes mellitus

REACTIONS (8)
  - Malaise [Unknown]
  - Bedridden [Unknown]
  - Fatigue [Unknown]
  - Hypoacusis [Unknown]
  - Ear infection [Unknown]
  - Aphonia [Unknown]
  - Sinus disorder [Unknown]
  - Inappropriate schedule of product administration [Unknown]
